FAERS Safety Report 9059289 (Version 2)
Quarter: 2013Q1

REPORT INFORMATION
  Report Type: Spontaneous
  Country: BR (occurrence: BR)
  Receive Date: 20130211
  Receipt Date: 20130314
  Transmission Date: 20140127
  Serious: Yes (Other)
  Sender: FDA-Public Use
  Company Number: PHHY2013BR012634

PATIENT
  Age: 69 None
  Sex: Male
  Weight: 69 kg

DRUGS (3)
  1. VOLTAREN [Suspect]
     Indication: BACK PAIN
     Dosage: 100 MG DAILY
     Route: 048
  2. PROFENID [Concomitant]
     Indication: BACK PAIN
     Dosage: 100 MG (1 TABLET A DAY)
     Route: 048
  3. PROFENID [Concomitant]
     Indication: NECK PAIN

REACTIONS (2)
  - Intervertebral disc protrusion [Recovering/Resolving]
  - Back pain [Not Recovered/Not Resolved]
